FAERS Safety Report 5238731-6 (Version None)
Quarter: 2007Q1

REPORT INFORMATION
  Report Type: 
  Country: None (occurrence: None)
  Receive Date: 20061208
  Receipt Date: 20050317
  Transmission Date: 20070707
  Serious: Yes (Other)
  Sender: FDA-Public Use
  Company Number: 2004UW26229

PATIENT
  Age: 63 Year
  Sex: Male
  Weight: 113.39 kg

DRUGS (17)
  1. CRESTOR [Suspect]
     Indication: BLOOD CHOLESTEROL INCREASED
     Dosage: 20 MG PO
     Route: 048
     Dates: start: 20050116, end: 20050317
  2. CRESTOR [Suspect]
     Indication: BLOOD CHOLESTEROL INCREASED
     Dosage: 40 MG PO
     Route: 048
     Dates: start: 20041201, end: 20050104
  3. CRESTOR [Suspect]
     Indication: BLOOD CHOLESTEROL INCREASED
     Dosage: 20 MG PO
     Route: 048
     Dates: start: 20040301, end: 20041201
  4. CRESTOR [Suspect]
     Indication: BLOOD CHOLESTEROL INCREASED
     Dosage: 10 MG PO
     Route: 048
     Dates: start: 20040101, end: 20040301
  5. NIACIN [Concomitant]
  6. FOLIC ACID [Concomitant]
  7. PLAVIX [Concomitant]
  8. ZETIA [Concomitant]
  9. AVAPRO [Concomitant]
  10. FLOMAX [Concomitant]
  11. CASODEX [Concomitant]
  12. UROCIT-K [Concomitant]
  13. PROTONIX [Concomitant]
  14. ASPIRIN [Concomitant]
  15. ZOLADEX [Concomitant]
  16. COUMADIN [Concomitant]
  17. TOPROL-XL [Concomitant]

REACTIONS (3)
  - CHEST DISCOMFORT [None]
  - DYSPNOEA [None]
  - INFLUENZA [None]
